FAERS Safety Report 8467448-X (Version None)
Quarter: 2012Q2

REPORT INFORMATION
  Report Type: 
  Country: None (occurrence: None)
  Receive Date: 20120626
  Receipt Date: 20120501
  Transmission Date: 20120825
  Serious: No
  Sender: FDA-Public Use
  Company Number: US-ASTRAZENECA-2012SE21529

PATIENT
  Age: 63 Year
  Sex: Male

DRUGS (5)
  1. HYDROCHLOROTHIAZIDE [Concomitant]
  2. CAPRELSA [Suspect]
     Indication: THYROID CANCER
     Route: 048
     Dates: start: 20120312
  3. INDERAL [Concomitant]
  4. ASPIRIN [Concomitant]
     Indication: ANTICOAGULANT THERAPY
  5. MAGNESIUM SULFATE [Concomitant]
     Indication: BLOOD MAGNESIUM DECREASED

REACTIONS (6)
  - FAECES DISCOLOURED [None]
  - DYSPNOEA [None]
  - DIARRHOEA [None]
  - COUGH [None]
  - BLISTER [None]
  - HEADACHE [None]
